FAERS Safety Report 9402474 (Version 1)
Quarter: 2013Q3

REPORT INFORMATION
  Report Type: Spontaneous
  Country: US (occurrence: None)
  Receive Date: 20130712
  Receipt Date: 20130712
  Transmission Date: 20140515
  Serious: Yes (Hospitalization)
  Sender: FDA-Public Use
  Company Number: None

PATIENT
  Age: 6 Year
  Sex: Female
  Weight: 19.5 kg

DRUGS (9)
  1. ONCASPAR [Suspect]
     Route: 042
     Dates: start: 20130703, end: 20130703
  2. GABAPENTIN [Concomitant]
  3. NYSTATIN [Concomitant]
  4. ACETAMINOPHEN [Concomitant]
  5. BACTRIM [Concomitant]
  6. VINCRISTINE [Concomitant]
  7. BENADRYL ALLERGY CHILDRENS LIQUID [Concomitant]
  8. PREDNISONE [Concomitant]
  9. FAMOTIDINE [Concomitant]

REACTIONS (4)
  - Erythema [None]
  - Urticaria [None]
  - Swelling [None]
  - Heart rate increased [None]
